FAERS Safety Report 6408998-7 (Version None)
Quarter: 2009Q4

REPORT INFORMATION
  Report Type: 
  Country: None (occurrence: None)
  Receive Date: 20091021
  Receipt Date: 20091012
  Transmission Date: 20100525
  Serious: Yes (Other)
  Sender: FDA-Public Use
  Company Number: US-SANOFI-SYNTHELABO-A03200904750

PATIENT
  Sex: Male

DRUGS (4)
  1. OTHER MEDICATION [Concomitant]
     Indication: BARRETT'S OESOPHAGUS
     Dosage: UNK
     Route: 065
  2. TAGAMET [Concomitant]
     Indication: BARRETT'S OESOPHAGUS
     Dosage: UNK
     Route: 065
  3. NEXIUM [Concomitant]
     Indication: BARRETT'S OESOPHAGUS
     Dosage: UNK
     Route: 065
  4. PLAVIX [Suspect]
     Indication: STENT PLACEMENT
     Route: 048
     Dates: start: 19970101

REACTIONS (1)
  - ARTERIAL OCCLUSIVE DISEASE [None]
